FAERS Safety Report 21293796 (Version 6)
Quarter: 2022Q4

REPORT INFORMATION
  Report Type: Report from Study
  Country: US (occurrence: US)
  Receive Date: 20220905
  Receipt Date: 20221104
  Transmission Date: 20230112
  Serious: Yes (Hospitalization, Other)
  Sender: FDA-Public Use
  Company Number: US-MALLINCKRODT-T202204615

PATIENT
  Sex: Female

DRUGS (2)
  1. CORTICOTROPIN [Suspect]
     Active Substance: CORTICOTROPIN
     Indication: Nephrotic syndrome
     Dosage: 1 MILLILITER (80 UNITS), QW
     Route: 058
     Dates: start: 20220613
  2. CORTICOTROPIN [Suspect]
     Active Substance: CORTICOTROPIN
     Indication: Focal segmental glomerulosclerosis

REACTIONS (9)
  - Cholelithiasis [Unknown]
  - Cholecystectomy [Unknown]
  - Glycosylated haemoglobin increased [Not Recovered/Not Resolved]
  - Renal impairment [Unknown]
  - Feeling abnormal [Not Recovered/Not Resolved]
  - Mood altered [Unknown]
  - Abdominal distension [Unknown]
  - Poor quality sleep [Unknown]
  - Product dose omission issue [Unknown]

NARRATIVE: CASE EVENT DATE: 20220101
